FAERS Safety Report 15741782 (Version 1)
Quarter: 2018Q4

REPORT INFORMATION
  Report Type: Spontaneous
  Country: IT (occurrence: IT)
  Receive Date: 20181219
  Receipt Date: 20181219
  Transmission Date: 20190205
  Serious: Yes (Other)
  Sender: FDA-Public Use
  Company Number: IT-ASTRAZENECA-2018SF62811

PATIENT
  Age: 61 Year
  Sex: Female

DRUGS (6)
  1. DILATREND [Concomitant]
     Active Substance: CARVEDILOL
  2. ZOPRANOL [Concomitant]
     Active Substance: ZOFENOPRIL
  3. BRILIQUE [Suspect]
     Active Substance: TICAGRELOR
     Route: 048
     Dates: start: 20181112, end: 20181124
  4. CARDIOASPIRIN [Concomitant]
     Active Substance: ASPIRIN
  5. NORVASC [Concomitant]
     Active Substance: AMLODIPINE BESYLATE
  6. TORVAST [Concomitant]
     Active Substance: ATORVASTATIN

REACTIONS (3)
  - Abdominal pain [Recovered/Resolved]
  - Cystitis haemorrhagic [Recovered/Resolved]
  - Diarrhoea [Recovered/Resolved]

NARRATIVE: CASE EVENT DATE: 20181124
